APPROVED DRUG PRODUCT: ACETYLCYSTEINE
Active Ingredient: ACETYLCYSTEINE
Strength: 6GM/30ML (200MG/ML)
Dosage Form/Route: INJECTABLE;INTRAVENOUS
Application: A218397 | Product #001 | TE Code: AP
Applicant: SOMERSET THERAPEUTICS LLC
Approved: Jun 7, 2024 | RLD: No | RS: No | Type: RX